FAERS Safety Report 8089017-6 (Version None)
Quarter: 2012Q1

REPORT INFORMATION
  Report Type: 
  Country: None (occurrence: None)
  Receive Date: 20120128
  Receipt Date: 20110718
  Transmission Date: 20120608
  Serious: No
  Sender: FDA-Public Use
  Company Number: PR-ABBOTT-11P-131-0840260-00

PATIENT
  Sex: Female
  Weight: 49.94 kg

DRUGS (5)
  1. HUMIRA [Suspect]
     Dosage: 1 PEN
     Route: 058
     Dates: start: 20110101
  2. HUMIRA [Suspect]
     Indication: RHEUMATOID ARTHRITIS
     Dosage: 1 PEN
     Route: 058
     Dates: start: 20100101, end: 20101201
  3. ULTRACET [Concomitant]
     Indication: PAIN
     Dosage: 37.5/325MG
     Route: 048
  4. HUMALOG [Concomitant]
     Indication: DIABETES MELLITUS
     Dosage: AT NIGHT
     Route: 058
  5. NPH INSULIN [Concomitant]
     Indication: DIABETES MELLITUS
     Dosage: 32 UNITS IN THE MORNING, 2-4 UNITS AT NIGHT.

REACTIONS (3)
  - INAPPROPRIATE SCHEDULE OF DRUG ADMINISTRATION [None]
  - GINGIVITIS [None]
  - PAIN [None]
